FAERS Safety Report 7974482-2 (Version None)
Quarter: 2011Q4

REPORT INFORMATION
  Report Type: 
  Country: None (occurrence: None)
  Receive Date: 20111213
  Receipt Date: 20111127
  Transmission Date: 20120403
  Serious: No
  Sender: FDA-Public Use
  Company Number: US-BAYER-2011-115110

PATIENT

DRUGS (3)
  1. ALEVE (CAPLET) [Suspect]
     Indication: MUSCULOSKELETAL STIFFNESS
  2. ALEVE (CAPLET) [Suspect]
     Indication: BACK PAIN
     Route: 048
  3. ALEVE (CAPLET) [Suspect]
     Indication: RENAL PAIN

REACTIONS (3)
  - RENAL PAIN [None]
  - MUSCULOSKELETAL STIFFNESS [None]
  - BACK PAIN [None]
